FAERS Safety Report 12407204 (Version 2)
Quarter: 2016Q3

REPORT INFORMATION
  Report Type: Spontaneous
  Country: CZ (occurrence: CZ)
  Receive Date: 20160526
  Receipt Date: 20160706
  Transmission Date: 20161109
  Serious: Yes (Hospitalization, Other)
  Sender: FDA-Public Use
  Company Number: CZ-BAXTER-2016BAX026696

PATIENT
  Age: 52 Year
  Sex: Female
  Weight: 68 kg

DRUGS (11)
  1. FYZIOLOGICK? ROZTOK VIAFLO [Suspect]
     Active Substance: SODIUM CHLORIDE
     Indication: OFF LABEL USE
  2. GUAJACURAN 5% [Suspect]
     Active Substance: GUAIFENESIN
     Dosage: DOSE RE-INTRODUCED
     Route: 042
  3. TRITTICO PROLONG 300 MG TABLETY S PRODLOUZENYM UVOLNOVANIM [Concomitant]
     Indication: ANTIDEPRESSANT THERAPY
     Route: 048
  4. DOGMATIL 50 MG [Concomitant]
     Indication: ANTIDEPRESSANT THERAPY
     Route: 048
  5. FYZIOLOGICK? ROZTOK VIAFLO [Suspect]
     Active Substance: SODIUM CHLORIDE
     Indication: ANALGESIC THERAPY
     Route: 042
     Dates: start: 20160505, end: 20160505
  6. NOVALGIN [Suspect]
     Active Substance: METAMIZOLE SODIUM
     Indication: ANALGESIC THERAPY
     Route: 065
     Dates: start: 20160504, end: 20160504
  7. INJECTIO PROCAINII CHLORATI 0,2% [Suspect]
     Active Substance: PROCAINE HYDROCHLORIDE
     Indication: ANALGESIC THERAPY
     Route: 042
     Dates: start: 20160504, end: 20160504
  8. NOVALGIN [Suspect]
     Active Substance: METAMIZOLE SODIUM
     Route: 042
     Dates: start: 20160505, end: 20160505
  9. MESOCAIN [Suspect]
     Active Substance: TRIMECAINE
     Indication: PRODUCT USED FOR UNKNOWN INDICATION
     Route: 065
     Dates: start: 20160505, end: 20160505
  10. GUAJACURAN 5% [Suspect]
     Active Substance: GUAIFENESIN
     Route: 042
     Dates: start: 20160505, end: 20160505
  11. GUAJACURAN 5% [Suspect]
     Active Substance: GUAIFENESIN
     Indication: ANALGESIC THERAPY
     Route: 042
     Dates: start: 20160504, end: 20160504

REACTIONS (2)
  - Blood pressure decreased [Recovered/Resolved]
  - Erythema [Recovered/Resolved]

NARRATIVE: CASE EVENT DATE: 20160505
